FAERS Safety Report 8148586 (Version 2)
Quarter: 2013Q1

REPORT INFORMATION
  Report Type: Spontaneous
  Country: US (occurrence: US)
  Receive Date: 20110922
  Receipt Date: 20130218
  Transmission Date: 20140127
  Serious: Yes (Other)
  Sender: FDA-Public Use
  Company Number: US-ASTRAZENECA-2008UW23685

PATIENT
  Age: 59 Year
  Sex: Male

DRUGS (19)
  1. SEROQUEL [Suspect]
     Route: 048
     Dates: start: 20041013
  2. ATIVAN [Concomitant]
     Dates: start: 20021022
  3. PAXIL [Concomitant]
     Dates: start: 20020206
  4. ZYPREXA [Concomitant]
     Dates: start: 20020206
  5. RISPERDAL [Concomitant]
     Dates: start: 20020308
  6. COGENTIN [Concomitant]
     Dates: start: 20020619
  7. TRILAFON [Concomitant]
     Dates: start: 20080208
  8. TRAZADONE [Concomitant]
     Dates: start: 20050208
  9. BENADRYL [Concomitant]
     Dates: start: 20030404
  10. AMLODIPINE [Concomitant]
     Dates: start: 201208
  11. ASPIRIN [Concomitant]
     Dates: start: 201208
  12. ATENOLOL [Concomitant]
     Dates: start: 201208
  13. CRESTOR [Concomitant]
     Dates: start: 201208
  14. GABAPENTIN [Concomitant]
     Dates: start: 201208
  15. HYDRALAZINE [Concomitant]
     Dates: start: 201208
  16. HYDROCODONE APAP [Concomitant]
     Dosage: AS NEEDED THREE TIMES A DAY
     Dates: start: 201208
  17. QUINAPRIL [Concomitant]
     Dates: start: 201208
  18. SPIRONOLACTONE [Concomitant]
     Dates: start: 201208
  19. ZOLOFT [Concomitant]
     Dates: start: 201208

REACTIONS (3)
  - Pancreatitis [Unknown]
  - Diabetic coma [Unknown]
  - Type 2 diabetes mellitus [Unknown]
